FAERS Safety Report 18054580 (Version 1)
Quarter: 2020Q3

REPORT INFORMATION
  Report Type: Spontaneous
  Country: JP (occurrence: JP)
  Receive Date: 20200722
  Receipt Date: 20200722
  Transmission Date: 20201103
  Serious: Yes (Other)
  Sender: FDA-Public Use
  Company Number: JP-PFIZER INC-2020276565

PATIENT

DRUGS (2)
  1. SELARA [Suspect]
     Active Substance: EPLERENONE
     Indication: CARDIAC FAILURE CONGESTIVE
  2. SELARA [Suspect]
     Active Substance: EPLERENONE
     Indication: ASCITES

REACTIONS (1)
  - Hypokalaemia [Unknown]
